FAERS Safety Report 4274269-0 (Version None)
Quarter: 2004Q1

REPORT INFORMATION
  Report Type: 
  Country: None (occurrence: None)
  Receive Date: 20040115
  Receipt Date: 20040106
  Transmission Date: 20041129
  Serious: Yes (Death, Hospitalization, Other)
  Sender: FDA-Public Use
  Company Number: 2003124061

PATIENT
  Age: 90 Year
  Sex: Female

DRUGS (6)
  1. ZYRTEC [Suspect]
     Indication: PRURITUS
     Dosage: UNKNOWN, ORAL
     Route: 048
     Dates: start: 20030530, end: 20031023
  2. MADOPAR (LEVODOPA, BENSERAZIDE HYDROCHLORIDE) [Suspect]
     Indication: PARKINSON'S DISEASE
     Dosage: 375 MG (DAILY) ORAL
     Route: 048
     Dates: start: 20020615, end: 20031023
  3. RIFAMPICIN [Suspect]
     Indication: OSTEITIS
     Dosage: 1200 MG (DAILY), ORAL
     Route: 048
     Dates: start: 20030520, end: 20031023
  4. MIANSERIN HYDROCHLORIDE (MIANSERIN HYDROCHLORIDE) [Suspect]
     Indication: DEPRESSION
     Dosage: 10 MG (DAILY), ORAL
     Route: 048
     Dates: start: 20030418, end: 20031023
  5. OFLOXACIN (OFLOXACIN) [Suspect]
     Indication: OSTEITIS
     Dosage: 200 MG (DAILY), ORAL
     Route: 048
     Dates: start: 20030520, end: 20031023
  6. MORPHINE SULFATE [Concomitant]

REACTIONS (15)
  - ANAEMIA [None]
  - C-REACTIVE PROTEIN INCREASED [None]
  - CONDITION AGGRAVATED [None]
  - CONFUSIONAL STATE [None]
  - CREATININE RENAL CLEARANCE DECREASED [None]
  - DECUBITUS ULCER [None]
  - DEHYDRATION [None]
  - DEPRESSION [None]
  - DYSKINESIA [None]
  - GENERAL PHYSICAL HEALTH DETERIORATION [None]
  - MALNUTRITION [None]
  - OSTEITIS [None]
  - PAIN [None]
  - PRURITUS [None]
  - RENAL FAILURE ACUTE [None]
